FAERS Safety Report 11101760 (Version 1)
Quarter: 2015Q2

REPORT INFORMATION
  Report Type: Report from Study
  Country: BE (occurrence: BE)
  Receive Date: 20150508
  Receipt Date: 20150508
  Transmission Date: 20150821
  Serious: Yes (Death, Hospitalization, Other)
  Sender: FDA-Public Use
  Company Number: PHHY2015BE055135

PATIENT
  Age: 64 Year
  Sex: Female

DRUGS (3)
  1. NO TREATMENT RECEIVED [Suspect]
     Active Substance: UNSPECIFIED INGREDIENT
     Indication: PRODUCT USED FOR UNKNOWN INDICATION
     Route: 065
     Dates: start: 20060226
  2. RAPAMUNE [Suspect]
     Active Substance: SIROLIMUS
     Indication: PRODUCT USED FOR UNKNOWN INDICATION
     Dosage: UNK
     Route: 065
     Dates: start: 20080226
  3. SANDIMMUNE NEORAL [Suspect]
     Active Substance: CYCLOSPORINE
     Indication: RENAL TRANSPLANT
     Dosage: UNK
     Route: 065
     Dates: start: 20060426, end: 20080226

REACTIONS (10)
  - Metastases to spleen [Fatal]
  - Metastases to lung [Unknown]
  - Ascites [Fatal]
  - Pulmonary mass [Unknown]
  - Metastases to liver [Fatal]
  - Metastases to bone [Fatal]
  - Metastases to pleura [Unknown]
  - Spleen disorder [Fatal]
  - Hepatic lesion [Fatal]
  - Pyrexia [Unknown]

NARRATIVE: CASE EVENT DATE: 20090205
